FAERS Safety Report 13328510 (Version 1)
Quarter: 2017Q1

REPORT INFORMATION
  Report Type: Other
  Country: US (occurrence: US)
  Receive Date: 20170313
  Receipt Date: 20170313
  Transmission Date: 20170428
  Serious: Yes (Disabling)
  Sender: FDA-Public Use
  Company Number: US-HETERO LABS LTD-1064169

PATIENT
  Sex: Male

DRUGS (1)
  1. SIMVASTATIN. [Suspect]
     Active Substance: SIMVASTATIN
     Indication: PRODUCT USED FOR UNKNOWN INDICATION
     Route: 065

REACTIONS (5)
  - Neuropathy peripheral [Unknown]
  - Fatigue [Unknown]
  - Mitochondrial myopathy [Unknown]
  - Myopathy [Unknown]
  - Myalgia [Recovered/Resolved]
